FAERS Safety Report 4936239-6 (Version None)
Quarter: 2006Q1

REPORT INFORMATION
  Report Type: 
  Country: None (occurrence: None)
  Receive Date: 20060307
  Receipt Date: 20051222
  Transmission Date: 20060701
  Serious: No
  Sender: FDA-Public Use
  Company Number: US-GLAXOSMITHKLINE-A0586834A

PATIENT
  Age: 54 Year

DRUGS (17)
  1. REQUIP [Suspect]
     Indication: RESTLESS LEGS SYNDROME
     Dosage: .5MG TWICE PER DAY
     Route: 048
  2. ALPRAZOLAM [Concomitant]
  3. PREVACID [Concomitant]
  4. RELAFEN [Concomitant]
  5. SUCRALFATE [Concomitant]
  6. ENALAPRIL MALEATE [Concomitant]
  7. METFORMIN [Concomitant]
  8. FUROSEMIDE [Concomitant]
  9. TRICOR [Concomitant]
  10. ATENOLOL [Concomitant]
  11. PLAVIX [Concomitant]
  12. HYOSCYAMINE [Concomitant]
  13. SINGULAIR [Concomitant]
  14. VYTORIN [Concomitant]
  15. ASPIRIN [Concomitant]
  16. LANTUS [Concomitant]
  17. HUMALOG [Concomitant]

REACTIONS (4)
  - DIZZINESS [None]
  - HYPOAESTHESIA [None]
  - NAUSEA [None]
  - NERVOUS SYSTEM DISORDER [None]
